FAERS Safety Report 5812182-5 (Version None)
Quarter: 2008Q3

REPORT INFORMATION
  Report Type: 
  Country: None (occurrence: None)
  Receive Date: 20080716
  Receipt Date: 20080710
  Transmission Date: 20090109
  Serious: Yes (Hospitalization)
  Sender: FDA-Public Use
  Company Number: US-GENENTECH-264255

PATIENT
  Sex: Female
  Weight: 82.54 kg

DRUGS (8)
  1. AVASTIN [Suspect]
     Indication: GLIOBLASTOMA MULTIFORME
     Dosage: UNK
     Route: 042
     Dates: start: 20080128
  2. IRINOTECAN HCL [Concomitant]
     Indication: DRUG USE FOR UNKNOWN INDICATION
     Dosage: UNK
     Dates: start: 20080128
  3. ATIVAN [Concomitant]
     Indication: DRUG USE FOR UNKNOWN INDICATION
  4. ATROPINE [Concomitant]
     Indication: DRUG USE FOR UNKNOWN INDICATION
  5. BACTRIM [Concomitant]
     Indication: DRUG USE FOR UNKNOWN INDICATION
  6. DECADRON [Concomitant]
     Indication: DRUG USE FOR UNKNOWN INDICATION
  7. KEPPRA [Concomitant]
     Indication: DRUG USE FOR UNKNOWN INDICATION
  8. ZOFRAN [Concomitant]
     Indication: DRUG USE FOR UNKNOWN INDICATION

REACTIONS (1)
  - PANCREATITIS [None]
